FAERS Safety Report 9846008 (Version 1)
Quarter: 2014Q1

REPORT INFORMATION
  Report Type: Spontaneous
  Country: US (occurrence: US)
  Receive Date: 20140127
  Receipt Date: 20140127
  Transmission Date: 20141002
  Serious: No
  Sender: FDA-Public Use
  Company Number: US-B.I. PHARMACEUTICALS,INC./RIDGEFIELD-2014-BI-02771PF

PATIENT
  Sex: Male

DRUGS (26)
  1. SPIRIVA [Suspect]
     Indication: PRODUCT USED FOR UNKNOWN INDICATION
     Route: 065
  2. CLOTRIMAZOLE [Concomitant]
     Dosage: 30 MG
     Route: 048
  3. PREDNISONE [Concomitant]
     Dosage: 20 MG
     Route: 048
  4. PREDNISONE [Concomitant]
     Dosage: 15 MG
     Route: 048
  5. WARFARIN [Concomitant]
     Dosage: 1 TAB
     Route: 048
  6. PEG 400- PROPYLENE GLYCOL 0.4-0.3% [Concomitant]
     Indication: DRY EYE
     Dosage: 1 DROP TO EYE
     Route: 065
  7. MUCINEX [Concomitant]
     Dosage: 2400 MG
     Route: 048
  8. TIOTROPIUM [Concomitant]
     Dosage: 18MEG
     Route: 055
  9. FLUTICASONE [Concomitant]
     Dosage: FORM.: SPRAY; DOSE PER APPLICATION AND DAILY DOSE: 50 MEG/ACTUATION
     Route: 045
  10. SERTRALINE [Concomitant]
     Dosage: 100 MG
     Route: 048
  11. HYDROXYCHLOROQUINE (PLAQUENIL) [Concomitant]
     Dosage: 800 MG
     Route: 048
  12. FOLIC ACID [Concomitant]
     Dosage: 1 MG
     Route: 048
  13. TAMSULOSIN (FLOMAX) [Concomitant]
     Dosage: 0.4 MG
     Route: 048
  14. BUDESONIDE [Concomitant]
     Dosage: 500 MEG INTO THE LUNGS TWO TIMES DALIY ; 0.5 MG/2 ML; MIX WITH VIAL OF PERFOROMIST
     Route: 065
  15. ALBUTEROL(VENTOLIN HFA) [Concomitant]
     Dosage: 3 PUF
     Route: 055
  16. MULTIVITAMIN [Concomitant]
     Dosage: 1 ANZ
     Route: 048
  17. NITROGLYCERIN [Concomitant]
     Dosage: UNDER THE TONGUE
     Route: 060
  18. ALBUTEROL [Concomitant]
     Dosage: DAILY DOSE: 2.5 MG /3 ML (0.083 %) NEBULIZATION
     Route: 065
  19. COLACE [Concomitant]
     Dosage: 200 MG
     Route: 048
  20. OMEPRAZOLE (PRILOSEC) [Concomitant]
     Dosage: 20 MG
     Route: 048
  21. FORMOTEROL FUMARATE (PERFOROMIST) [Concomitant]
     Dosage: 20 MEG BY NEBULIZATION; MIX WITH 20 MCG/2 ML NELLU
     Route: 065
  22. ALPRAZOLAM [Concomitant]
     Dosage: 4 MG
     Route: 065
  23. LISINOPRIL [Concomitant]
     Dosage: 5 MG
     Route: 048
  24. HYDROCODONE-ACETAMINOPHEN [Concomitant]
     Dosage: DOSE PER APPLICATION: 10 TO 325 MG PER
     Route: 048
  25. INFLUENZA (SPLIT) [Concomitant]
     Indication: IMMUNISATION
     Route: 065
  26. PNEUMOCOCCAL POLYSACCHARIDE [Concomitant]
     Route: 065

REACTIONS (3)
  - Arteriosclerosis [Unknown]
  - Atrial fibrillation [Unknown]
  - Hypertension [Unknown]
